FAERS Safety Report 10371516 (Version 2)
Quarter: 2014Q4

REPORT INFORMATION
  Report Type: Spontaneous
  Country: IT (occurrence: IT)
  Receive Date: 20140808
  Receipt Date: 20141007
  Transmission Date: 20150528
  Serious: Yes (Life-Threatening)
  Sender: FDA-Public Use
  Company Number: IT-TEVA-499055ISR

PATIENT
  Age: 35 Year
  Sex: Female

DRUGS (10)
  1. EUTIROX 75 MCG [Concomitant]
     Active Substance: LEVOTHYROXINE SODIUM
     Dosage: 75 MICROGRAM DAILY;
  2. ZONEGRAN [Concomitant]
     Active Substance: ZONISAMIDE
     Dosage: 200 MILLIGRAM DAILY;
  3. TEGRETOL [Concomitant]
     Active Substance: CARBAMAZEPINE
     Dosage: 800 MILLIGRAM DAILY;
  4. QUETIAPINA TEVA [Suspect]
     Active Substance: QUETIAPINE
     Indication: BIPOLAR DISORDER
     Dosage: 200 MILLIGRAM DAILY;
     Route: 048
     Dates: start: 20140423, end: 20140612
  5. RIVOTRIL [Concomitant]
     Active Substance: CLONAZEPAM
     Dosage: 13 GTT DAILY;
  6. TIMOPTOL [Concomitant]
     Active Substance: TIMOLOL
     Dosage: 3 GTT DAILY;
  7. NOZINAN 25 MG [Concomitant]
     Dosage: 25 MILLIGRAM DAILY;
  8. TOPAMAX 100MG [Concomitant]
     Dosage: 200 MILLIGRAM DAILY;
  9. OMEPRAZEN 20 MG [Concomitant]
     Dosage: 20 MILLIGRAM DAILY;
  10. DIAMOX SEQUELS [Concomitant]
     Active Substance: ACETAZOLAMIDE

REACTIONS (6)
  - Amenorrhoea [Recovered/Resolved]
  - Weight increased [Recovered/Resolved]
  - Insomnia [Recovered/Resolved]
  - Conduct disorder [Recovered/Resolved]
  - Intentional self-injury [Recovered/Resolved]
  - Aggression [Recovered/Resolved]

NARRATIVE: CASE EVENT DATE: 20140501
